FAERS Safety Report 20625466 (Version 1)
Quarter: 2022Q1

REPORT INFORMATION
  Report Type: Spontaneous
  Country: NL (occurrence: NL)
  Receive Date: 20220323
  Receipt Date: 20220323
  Transmission Date: 20220423
  Serious: Yes (Congenital Anomaly)
  Sender: FDA-Public Use
  Company Number: None

PATIENT
  Sex: Male

DRUGS (4)
  1. LAMOTRIGINE [Suspect]
     Active Substance: LAMOTRIGINE
     Indication: Epilepsy
     Dosage: 400 MILLIGRAM DAILY; 200 MG TWICE A DAY, MID-PREGNANCY AT 250-200 M , THERAPY END DATE : ASKU; BRAND
     Dates: start: 2021
  2. LAMOTRIGINE [Suspect]
     Active Substance: LAMOTRIGINE
     Dosage: 200 MG , THERAPY START DATE AND END DATE : ASKU; BRAND NAME NOT SPECIFIED
  3. LAMOTRIGINE [Suspect]
     Active Substance: LAMOTRIGINE
     Dosage: MID PREGNANCY AT 250-200 , UNIT DOSE : 250 MG , THERAPY START DATE AND END DATE : ASKU; BRAND NAME N
  4. FOLIC ACID [Concomitant]
     Active Substance: FOLIC ACID
     Dosage: FOLIUMZUUR / BRAND NAME NOT SPECIFIED , THERAPY START DATE AND END DATE : ASKU

REACTIONS (2)
  - Polydactyly [Not Recovered/Not Resolved]
  - Maternal exposure during pregnancy [Unknown]
